FAERS Safety Report 7637309-4 (Version None)
Quarter: 2011Q3

REPORT INFORMATION
  Report Type: 
  Country: None (occurrence: None)
  Receive Date: 20110726
  Receipt Date: 20110713
  Transmission Date: 20111222
  Serious: Yes (Hospitalization, Other)
  Sender: FDA-Public Use
  Company Number: US-ELI_LILLY_AND_COMPANY-US201012000561

PATIENT
  Sex: Male

DRUGS (13)
  1. FORTEO [Suspect]
     Dosage: 20 UG, QD
  2. NITROGLYCERIN [Concomitant]
  3. CARVEDILOL [Concomitant]
  4. LISINOPRIL [Concomitant]
  5. FORTEO [Suspect]
     Dosage: 20 UG, QD
  6. CLAVULANATE POTASSIUM [Concomitant]
  7. LASIX [Concomitant]
  8. COUMADIN [Concomitant]
  9. FORTEO [Suspect]
     Dosage: 20 UG, QD
  10. FORTEO [Suspect]
     Indication: OSTEOPOROSIS
     Dosage: 20 UG, QD
  11. FORTEO [Suspect]
     Dosage: 20 UG, QD
  12. CATAPRES                                /UNK/ [Concomitant]
  13. LEVOTHYROXINE SODIUM [Concomitant]

REACTIONS (13)
  - BACK PAIN [None]
  - TREMOR [None]
  - INJECTION SITE PRURITUS [None]
  - PULMONARY OEDEMA [None]
  - URINARY TRACT INFECTION [None]
  - URINE ANALYSIS ABNORMAL [None]
  - INJECTION SITE HAEMATOMA [None]
  - INJECTION SITE DISCOMFORT [None]
  - PNEUMONIA [None]
  - DYSPNOEA [None]
  - FEELING COLD [None]
  - PAIN [None]
  - INJECTION SITE PAIN [None]
